FAERS Safety Report 17225346 (Version 1)
Quarter: 2020Q1

REPORT INFORMATION
  Report Type: Spontaneous
  Country: FR (occurrence: FR)
  Receive Date: 20200102
  Receipt Date: 20200102
  Transmission Date: 20200409
  Serious: Yes (Hospitalization, Other)
  Sender: FDA-Public Use
  Company Number: FR-SA-2019SA360259

PATIENT
  Age: 59 Year
  Sex: Female

DRUGS (2)
  1. BENEPALI [Suspect]
     Active Substance: ETANERCEPT
     Indication: ANKYLOSING SPONDYLITIS
     Dosage: 50 MG, QW
     Route: 058
     Dates: start: 20190416, end: 20190818
  2. APROVEL [Suspect]
     Active Substance: IRBESARTAN
     Indication: HYPERTENSION
     Dosage: 150 MG, QD
     Route: 048
     Dates: start: 201811, end: 20190823

REACTIONS (1)
  - Small intestinal perforation [Recovered/Resolved]

NARRATIVE: CASE EVENT DATE: 20190823
